FAERS Safety Report 6934097-1 (Version None)
Quarter: 2010Q3

REPORT INFORMATION
  Report Type: 
  Country: None (occurrence: None)
  Receive Date: 20100820
  Receipt Date: 20100813
  Transmission Date: 20110219
  Serious: Yes (Other)
  Sender: FDA-Public Use
  Company Number: JP-MERCK-1008USA01059

PATIENT
  Age: 68 Year
  Sex: Female

DRUGS (11)
  1. FOSAMAX [Suspect]
     Indication: OSTEOPOROSIS
     Route: 048
     Dates: start: 20080516, end: 20091104
  2. FOSAMAX [Suspect]
     Route: 048
     Dates: start: 20041224, end: 20080516
  3. MARZULENE-S [Concomitant]
     Indication: GASTRITIS
     Dosage: 2G3 X DURING A DAY
     Route: 048
  4. LORCAM [Concomitant]
     Indication: ANTIINFLAMMATORY THERAPY
     Route: 048
  5. ANPLAG [Concomitant]
     Indication: THROMBOSIS PROPHYLAXIS
     Route: 048
  6. MAGNESIUM OXIDE [Concomitant]
     Indication: CONSTIPATION
     Dosage: 2G3 X DURING A DAY
     Route: 048
  7. AMOBAN [Concomitant]
     Indication: INSOMNIA
     Route: 048
  8. TAKEPRON [Concomitant]
     Indication: REFLUX OESOPHAGITIS
     Route: 048
  9. PREDONINE [Concomitant]
     Indication: RHEUMATOID ARTHRITIS
     Route: 048
  10. RHEUMATREX [Concomitant]
     Indication: RHEUMATOID ARTHRITIS
     Route: 048
  11. FOLIAMIN [Concomitant]
     Indication: FOLATE DEFICIENCY
     Route: 048

REACTIONS (1)
  - OSTEOMYELITIS [None]
